FAERS Safety Report 6238655-1 (Version None)
Quarter: 2009Q2

REPORT INFORMATION
  Report Type: 
  Country: None (occurrence: None)
  Receive Date: 20090617
  Receipt Date: 20090617
  Transmission Date: 20091009
  Serious: No
  Sender: FDA-Public Use
  Company Number: None

PATIENT
  Age: 25 Year
  Sex: Female
  Weight: 58.9676 kg

DRUGS (1)
  1. ZICAM SWABS [Suspect]
     Dosage: 1 SWAB TWICE A DAY
     Dates: start: 20050601, end: 20050601

REACTIONS (2)
  - ANOSMIA [None]
  - PAROSMIA [None]
